FAERS Safety Report 4367431-X (Version None)
Quarter: 2004Q2

REPORT INFORMATION
  Report Type: 
  Country: None (occurrence: None)
  Receive Date: 20040528
  Receipt Date: 20040528
  Transmission Date: 20050107
  Serious: Yes (Life-Threatening)
  Sender: FDA-Public Use
  Company Number: None

PATIENT
  Age: 60 Year
  Sex: Female
  Weight: 50.3493 kg

DRUGS (3)
  1. CISPLATIN [Suspect]
     Indication: LUNG NEOPLASM MALIGNANT
     Dosage: 35 MG IV DAY 1,2,3, EVERY 3 WEEKS
     Route: 042
     Dates: start: 20040527
  2. BENADRYL [Concomitant]
  3. DECADRON [Concomitant]

REACTIONS (3)
  - DIZZINESS [None]
  - HYPOAESTHESIA ORAL [None]
  - PARAESTHESIA ORAL [None]
